FAERS Safety Report 7269554-4 (Version None)
Quarter: 2011Q1

REPORT INFORMATION
  Report Type: 
  Country: None (occurrence: None)
  Receive Date: 20110202
  Receipt Date: 20110127
  Transmission Date: 20110831
  Serious: No
  Sender: FDA-Public Use
  Company Number: US-JNJFOC-20110107592

PATIENT
  Age: 17 Year
  Sex: Female
  Weight: 92.53 kg

DRUGS (8)
  1. TOPIRAMATE [Concomitant]
     Indication: ILL-DEFINED DISORDER
     Route: 065
  2. INVEGA SUSTENNA [Suspect]
     Indication: SCHIZOAFFECTIVE DISORDER
     Route: 030
  3. INVEGA SUSTENNA [Suspect]
     Route: 030
  4. RISPERDAL [Concomitant]
     Indication: ILL-DEFINED DISORDER
     Route: 048
  5. CLONIDINE [Concomitant]
     Indication: ILL-DEFINED DISORDER
     Route: 065
  6. METFORMIN [Concomitant]
     Indication: ILL-DEFINED DISORDER
     Route: 065
  7. RISPERDAL CONSTA [Concomitant]
     Indication: SCHIZOAFFECTIVE DISORDER
     Route: 030
  8. RISPERDAL [Concomitant]
     Route: 048

REACTIONS (1)
  - INAPPROPRIATE SCHEDULE OF DRUG ADMINISTRATION [None]
